FAERS Safety Report 24644003 (Version 1)
Quarter: 2024Q4

REPORT INFORMATION
  Report Type: Spontaneous
  Country: US (occurrence: US)
  Receive Date: 20241120
  Receipt Date: 20241120
  Transmission Date: 20250115
  Serious: No
  Sender: MYLAN
  Company Number: US-MYLANLABS-2024M1100786

PATIENT
  Sex: Male

DRUGS (1)
  1. XANAX [Suspect]
     Active Substance: ALPRAZOLAM
     Indication: Anxiety
     Dosage: UNK, TID (TAKE 0.5-1 TABLETS (0.25-0.5 MG TOTAL) BY MOUTH 3 (THREE) TIMES A DAY IF NEEDED)
     Route: 048

REACTIONS (1)
  - Off label use [Unknown]
